FAERS Safety Report 10191241 (Version 1)
Quarter: 2014Q2

REPORT INFORMATION
  Report Type: Spontaneous
  Country: GB (occurrence: GB)
  Receive Date: 20140523
  Receipt Date: 20140523
  Transmission Date: 20141212
  Serious: Yes (Disabling, Other)
  Sender: FDA-Public Use
  Company Number: US-ASTRAZENECA-2014SE35272

PATIENT
  Age: 61 Year
  Sex: Male

DRUGS (2)
  1. CANDESARTAN [Suspect]
     Indication: HYPERTENSION
     Route: 048
     Dates: start: 20061110, end: 20140127
  2. CANDESARTAN [Suspect]
     Indication: HYPERTENSION
     Route: 048
     Dates: start: 20140127, end: 20140128

REACTIONS (2)
  - Vasculitic rash [Recovering/Resolving]
  - Skin lesion [Recovering/Resolving]
